FAERS Safety Report 14485459 (Version 3)
Quarter: 2018Q2

REPORT INFORMATION
  Report Type: Spontaneous
  Country: JP (occurrence: JP)
  Receive Date: 20180205
  Receipt Date: 20180502
  Transmission Date: 20180711
  Serious: Yes (Hospitalization)
  Sender: FDA-Public Use
  Company Number: JP-009507513-1711JPN001236J

PATIENT
  Age: 58 Year
  Sex: Male
  Weight: 56 kg

DRUGS (3)
  1. NEXIUM [Concomitant]
     Active Substance: ESOMEPRAZOLE MAGNESIUM
     Indication: PROPHYLAXIS
     Dosage: UNK
     Route: 048
  2. KEYTRUDA [Suspect]
     Active Substance: PEMBROLIZUMAB
     Indication: NODULAR MELANOMA
     Dosage: 2 MG/KG, Q3W
     Route: 041
     Dates: start: 20171026
  3. PREDONINE [Concomitant]
     Active Substance: PREDNISOLONE
     Indication: PROPHYLAXIS
     Dosage: 10 MG, UNK
     Route: 048

REACTIONS (2)
  - Blood insulin increased [Recovering/Resolving]
  - Liver disorder [Recovered/Resolved]

NARRATIVE: CASE EVENT DATE: 20180105
